FAERS Safety Report 6840361-7 (Version None)
Quarter: 2010Q3

REPORT INFORMATION
  Report Type: 
  Country: None (occurrence: None)
  Receive Date: 20100713
  Receipt Date: 20100713
  Transmission Date: 20110219
  Serious: Yes (Hospitalization)
  Sender: FDA-Public Use
  Company Number: None

PATIENT
  Sex: Male
  Weight: 84.09 kg

DRUGS (4)
  1. XELODA [Suspect]
     Dosage: 8500 MG
  2. CAMPTOSAR [Suspect]
     Dosage: 240 MG
  3. ELOXATIN [Suspect]
     Dosage: 160 MG
  4. TPN ELECTROLYTES IN PLASTIC CONTAINER [Concomitant]

REACTIONS (6)
  - AGITATION [None]
  - ASTHENIA [None]
  - DELIRIUM [None]
  - DEVICE RELATED INFECTION [None]
  - NAUSEA [None]
  - VOMITING [None]
